FAERS Safety Report 9210906 (Version 1)
Quarter: 2013Q2

REPORT INFORMATION
  Report Type: Spontaneous
  Country: US (occurrence: US)
  Receive Date: 20130404
  Receipt Date: 20130404
  Transmission Date: 20140414
  Serious: No
  Sender: FDA-Public Use
  Company Number: US-B.I. PHARMACEUTICALS,INC./RIDGEFIELD-2013-BI-08234BP

PATIENT
  Age: 76 Year
  Sex: Female
  Weight: 53 kg

DRUGS (5)
  1. ZANTAC (RANITIDINE HYDROCHLORIDE) [Suspect]
     Indication: GASTROOESOPHAGEAL REFLUX DISEASE
     Dosage: 300 MG
     Route: 048
     Dates: start: 201302
  2. ZANTAC (RANITIDINE HYDROCHLORIDE) [Suspect]
     Indication: HIATUS HERNIA
  3. LABETALOL [Concomitant]
     Indication: HYPERTENSION
     Dates: start: 201302
  4. COZAAR [Concomitant]
     Indication: HYPERTENSION
     Dates: start: 2003
  5. HYDROCHLOROTHIAZIDE [Concomitant]
     Indication: FLUID RETENTION
     Dates: start: 201301

REACTIONS (4)
  - Alopecia [Not Recovered/Not Resolved]
  - Pruritus [Not Recovered/Not Resolved]
  - Onychoclasis [Not Recovered/Not Resolved]
  - Tinnitus [Not Recovered/Not Resolved]
